FAERS Safety Report 7907664-6 (Version None)
Quarter: 2011Q4

REPORT INFORMATION
  Report Type: 
  Country: None (occurrence: None)
  Receive Date: 20111109
  Receipt Date: 20111026
  Transmission Date: 20120403
  Serious: Yes (Hospitalization)
  Sender: FDA-Public Use
  Company Number: TIF2011A00125

PATIENT
  Age: 63 Year
  Sex: Male

DRUGS (5)
  1. PIOGLITAZONE HYDROCHLORIDE AND METFORMIN HYDROCHLORIDE [Suspect]
     Indication: TYPE 2 DIABETES MELLITUS
     Dosage: 30 + 1700 MG (2 IN 1 D)
     Route: 048
     Dates: start: 20100401, end: 20110801
  2. BLOPRESS 16(CANDESARTAN CILEXETIL) [Concomitant]
  3. TOTALIP 40 MG(ATORVASTATIN CALCIUM) [Concomitant]
  4. ASPIRIN [Concomitant]
  5. LANSOX 30(LANSOPRAZOLE) [Concomitant]

REACTIONS (1)
  - BLADDER TRANSITIONAL CELL CARCINOMA [None]
